FAERS Safety Report 4678249-2 (Version None)
Quarter: 2005Q2

REPORT INFORMATION
  Report Type: 
  Country: None (occurrence: None)
  Receive Date: 20050601
  Receipt Date: 20050519
  Transmission Date: 20051028
  Serious: Yes (Hospitalization)
  Sender: FDA-Public Use
  Company Number: 200511694FR

PATIENT
  Age: 93 Year
  Sex: Female

DRUGS (13)
  1. LASILIX [Suspect]
     Route: 048
     Dates: end: 20050401
  2. SEROPRAM [Suspect]
     Indication: DEPRESSION
     Route: 048
     Dates: start: 20050301, end: 20050413
  3. KARDEGIC [Suspect]
     Indication: ATRIAL FIBRILLATION
     Route: 048
  4. KARDEGIC [Suspect]
     Indication: ATRIAL FLUTTER
     Route: 048
  5. CORDARONE [Concomitant]
     Indication: ATRIAL FIBRILLATION
     Route: 048
  6. CORDARONE [Concomitant]
     Indication: ATRIAL FLUTTER
     Route: 048
  7. XANAX [Concomitant]
     Route: 048
     Dates: end: 20050413
  8. SKENAN [Concomitant]
     Route: 048
  9. DAFALGAN [Concomitant]
  10. NITROGLYCERIN [Concomitant]
     Route: 003
  11. MOPRAL [Concomitant]
  12. STILNOX [Concomitant]
     Route: 048
  13. FOSAMAX [Concomitant]
     Route: 048

REACTIONS (5)
  - CARDIAC FAILURE [None]
  - GENERAL PHYSICAL HEALTH DETERIORATION [None]
  - HYPERKALAEMIA [None]
  - HYPONATRAEMIA [None]
  - LUNG DISORDER [None]
